FAERS Safety Report 5666956-4 (Version None)
Quarter: 2008Q1

REPORT INFORMATION
  Report Type: 
  Country: None (occurrence: None)
  Receive Date: 20080315
  Receipt Date: 20080103
  Transmission Date: 20080703
  Serious: No
  Sender: FDA-Public Use
  Company Number: US-ABBOTT-08P-163-0432673-00

PATIENT
  Sex: Female
  Weight: 56.296 kg

DRUGS (6)
  1. HUMIRA [Suspect]
     Indication: CROHN'S DISEASE
     Route: 058
     Dates: start: 20071226, end: 20071226
  2. HUMIRA [Suspect]
     Route: 058
     Dates: start: 20071212, end: 20071212
  3. PREDNISONE [Concomitant]
     Indication: DRUG USE FOR UNKNOWN INDICATION
  4. SERTRALINE [Concomitant]
     Indication: DRUG USE FOR UNKNOWN INDICATION
  5. IMODIUM [Concomitant]
     Indication: DRUG USE FOR UNKNOWN INDICATION
  6. CLONAZEPAM [Concomitant]
     Indication: DRUG USE FOR UNKNOWN INDICATION

REACTIONS (10)
  - ABNORMAL SENSATION IN EYE [None]
  - BALANCE DISORDER [None]
  - CLUMSINESS [None]
  - DYSKINESIA [None]
  - EYELID OEDEMA [None]
  - INJECTION SITE EXTRAVASATION [None]
  - INJECTION SITE IRRITATION [None]
  - INSOMNIA [None]
  - MALAISE [None]
  - PYREXIA [None]
